FAERS Safety Report 11724453 (Version 2)
Quarter: 2015Q4

REPORT INFORMATION
  Report Type: Spontaneous
  Country: JP (occurrence: JP)
  Receive Date: 20151111
  Receipt Date: 20151118
  Transmission Date: 20160304
  Serious: Yes (Death, Other)
  Sender: FDA-Public Use
  Company Number: PHHY2014JP180650

PATIENT
  Age: 80 Year
  Sex: Female

DRUGS (2)
  1. VOTRIENT [Suspect]
     Active Substance: PAZOPANIB HYDROCHLORIDE
     Indication: SOFT TISSUE SARCOMA
     Dosage: 400 MG,
     Route: 048
     Dates: start: 20140121
  2. VOTRIENT [Suspect]
     Active Substance: PAZOPANIB HYDROCHLORIDE
     Indication: ANGIOSARCOMA
     Dosage: 600 MG,
     Route: 048
     Dates: start: 20130927, end: 20140120

REACTIONS (6)
  - Angiosarcoma [Fatal]
  - Pleural effusion [Not Recovered/Not Resolved]
  - Platelet count decreased [Recovered/Resolved]
  - Multi-organ failure [Fatal]
  - Hypertension [Recovered/Resolved]
  - General physical health deterioration [Unknown]

NARRATIVE: CASE EVENT DATE: 20130928
